FAERS Safety Report 10099863 (Version 2)
Quarter: 2014Q2

REPORT INFORMATION
  Report Type: Spontaneous
  Country: US (occurrence: US)
  Receive Date: 20140423
  Receipt Date: 20140423
  Transmission Date: 20141212
  Serious: No
  Sender: FDA-Public Use
  Company Number: US-GILEAD-2013-0073885

PATIENT
  Sex: Male

DRUGS (4)
  1. LETAIRIS [Suspect]
     Indication: PULMONARY ARTERIAL HYPERTENSION
     Dosage: 5 MG, QD
     Route: 048
     Dates: start: 20130412
  2. REVATIO [Concomitant]
  3. REMODULIN [Concomitant]
  4. COUMADIN                           /00014802/ [Concomitant]

REACTIONS (1)
  - Infusion site haemorrhage [Unknown]
